FAERS Safety Report 15992108 (Version 6)
Quarter: 2022Q4

REPORT INFORMATION
  Report Type: Spontaneous
  Country: US (occurrence: None)
  Receive Date: 20190221
  Receipt Date: 20221213
  Transmission Date: 20230113
  Serious: Yes (Other)
  Sender: FDA-Public Use
  Company Number: 2018SF21255

PATIENT
  Age: 20478 Day
  Sex: Male
  Weight: 93.9 kg

DRUGS (55)
  1. NEXIUM [Suspect]
     Active Substance: ESOMEPRAZOLE MAGNESIUM
     Indication: Dyspepsia
     Route: 048
  2. NEXIUM [Suspect]
     Active Substance: ESOMEPRAZOLE MAGNESIUM
     Indication: Dyspepsia
     Route: 048
     Dates: start: 19970101, end: 20171231
  3. NEXIUM [Suspect]
     Active Substance: ESOMEPRAZOLE MAGNESIUM
     Indication: Dyspepsia
     Route: 048
     Dates: start: 20070101, end: 20171231
  4. PRILOSEC [Suspect]
     Active Substance: OMEPRAZOLE MAGNESIUM
     Indication: Dyspepsia
     Route: 048
  5. PRILOSEC [Suspect]
     Active Substance: OMEPRAZOLE MAGNESIUM
     Indication: Dyspepsia
     Dosage: GENERIC
     Route: 048
     Dates: start: 20180630
  6. PRILOSEC [Suspect]
     Active Substance: OMEPRAZOLE MAGNESIUM
     Indication: Dyspepsia
     Dosage: GENERIC 40 MG, EVERY TWO DAYS
     Route: 065
     Dates: start: 2017, end: 2018
  7. PRILOSEC [Suspect]
     Active Substance: OMEPRAZOLE MAGNESIUM
     Indication: Dyspepsia
     Route: 048
     Dates: start: 19970101, end: 2013
  8. PRILOSEC [Suspect]
     Active Substance: OMEPRAZOLE MAGNESIUM
     Indication: Dyspepsia
     Route: 048
     Dates: start: 19970101, end: 20071221
  9. PRILOSEC [Suspect]
     Active Substance: OMEPRAZOLE MAGNESIUM
     Indication: Dyspepsia
     Dosage: GENERIC
     Route: 065
  10. PREVACID [Suspect]
     Active Substance: LANSOPRAZOLE
     Indication: Dyspepsia
     Route: 065
  11. PREVACID [Suspect]
     Active Substance: LANSOPRAZOLE
     Indication: Dyspepsia
     Route: 065
     Dates: start: 19970101, end: 20091231
  12. PROTONIX [Suspect]
     Active Substance: PANTOPRAZOLE SODIUM
     Indication: Dyspepsia
     Route: 065
  13. PROTONIX [Suspect]
     Active Substance: PANTOPRAZOLE SODIUM
     Indication: Dyspepsia
     Route: 065
  14. CARVEDILOL [Concomitant]
     Active Substance: CARVEDILOL
  15. LOSARTAN [Concomitant]
     Active Substance: LOSARTAN
  16. VERAPAMIL [Concomitant]
     Active Substance: VERAPAMIL HYDROCHLORIDE
  17. AMLODIPINE [Concomitant]
     Active Substance: AMLODIPINE BESYLATE
  18. GABAPENTIN [Concomitant]
     Active Substance: GABAPENTIN
  19. HYDRALAZINE [Concomitant]
     Active Substance: HYDRALAZINE HYDROCHLORIDE
  20. TACROLIMUS [Concomitant]
     Active Substance: TACROLIMUS
  21. LOVENOX [Concomitant]
     Active Substance: ENOXAPARIN SODIUM
  22. SUCRALFATE [Concomitant]
     Active Substance: SUCRALFATE
  23. COLACE [Concomitant]
     Active Substance: DOCUSATE SODIUM
  24. ONDANSETRON [Concomitant]
     Active Substance: ONDANSETRON
  25. DIOVAN [Concomitant]
     Active Substance: VALSARTAN
  26. CARVIDORA [Concomitant]
  27. CELLCEPT [Concomitant]
     Active Substance: MYCOPHENOLATE MOFETIL
  28. HYDROCODONE BITARTRATE AND ACETAMINOPHEN [Concomitant]
     Active Substance: ACETAMINOPHEN\HYDROCODONE BITARTRATE
  29. ULORIC [Concomitant]
     Active Substance: FEBUXOSTAT
  30. MINOXIDIL [Concomitant]
     Active Substance: MINOXIDIL
  31. COUMADIN [Concomitant]
     Active Substance: WARFARIN SODIUM
  32. HEPARIN [Concomitant]
     Active Substance: HEPARIN SODIUM
  33. AFRIN [Concomitant]
     Active Substance: OXYMETAZOLINE
  34. METOLAZONE [Concomitant]
     Active Substance: METOLAZONE
  35. DARBEPOETIN ALFA [Concomitant]
     Active Substance: DARBEPOETIN ALFA
  36. SENSIPAR [Concomitant]
     Active Substance: CINACALCET HYDROCHLORIDE
  37. EPOGEN [Concomitant]
     Active Substance: ERYTHROPOIETIN
  38. ALLOPURINOL [Concomitant]
     Active Substance: ALLOPURINOL
  39. CLONAZEPAM [Concomitant]
     Active Substance: CLONAZEPAM
  40. ATACAND [Concomitant]
     Active Substance: CANDESARTAN CILEXETIL
  41. PREDNISONE [Concomitant]
     Active Substance: PREDNISONE
  42. WARFARIN [Concomitant]
     Active Substance: WARFARIN
  43. LEVAQUIN [Concomitant]
     Active Substance: LEVOFLOXACIN
  44. MYFORTIC [Concomitant]
     Active Substance: MYCOPHENOLATE SODIUM
  45. PROGRAF [Concomitant]
     Active Substance: TACROLIMUS
  46. NORVASC [Concomitant]
     Active Substance: AMLODIPINE BESYLATE
  47. LACTULOSE [Concomitant]
     Active Substance: LACTULOSE
  48. OSELTAMIVIR [Concomitant]
     Active Substance: OSELTAMIVIR
  49. BUSPIRONE HCL [Concomitant]
     Active Substance: BUSPIRONE HYDROCHLORIDE
  50. SOD POLY SUL [Concomitant]
  51. AZITHROMYCIN [Concomitant]
     Active Substance: AZITHROMYCIN
  52. BENZONATATE [Concomitant]
     Active Substance: BENZONATATE
  53. VIRTUSSIN [Concomitant]
  54. MORPHINE SULFATE [Concomitant]
     Active Substance: MORPHINE SULFATE
  55. COLCHICINE [Concomitant]
     Active Substance: COLCHICINE

REACTIONS (9)
  - Renal failure [Unknown]
  - Chronic kidney disease [Not Recovered/Not Resolved]
  - End stage renal disease [Not Recovered/Not Resolved]
  - Nephrogenic anaemia [Unknown]
  - Hyperparathyroidism secondary [Unknown]
  - Acute kidney injury [Not Recovered/Not Resolved]
  - Renal injury [Unknown]
  - Renal tubular necrosis [Unknown]
  - Hyperphosphataemia [Unknown]

NARRATIVE: CASE EVENT DATE: 20130906
